FAERS Safety Report 6308247-4 (Version None)
Quarter: 2009Q3

REPORT INFORMATION
  Report Type: 
  Country: None (occurrence: None)
  Receive Date: 20090810
  Receipt Date: 20090730
  Transmission Date: 20100115
  Serious: Yes (Life-Threatening, Hospitalization)
  Sender: FDA-Public Use
  Company Number: US-JNJFOC-20090706778

PATIENT
  Age: 82 Year
  Sex: Male

DRUGS (10)
  1. DECITABINE (DECITABINE) LYOPHILIZED POWDER [Suspect]
     Indication: ACUTE MYELOID LEUKAEMIA
     Dosage: 20 MG/M2, INTRAVENOUS,
     Route: 042
     Dates: start: 20080429, end: 20080503
  2. VORINOSTAT (VORINOSTAT) UNSPECIFIED [Suspect]
     Indication: ACUTE MYELOID LEUKAEMIA
     Dosage: 400 MG, ORAL, 400 MG, ORAL,
     Route: 048
     Dates: start: 20080504, end: 20080517
  3. VORINOSTAT (VORINOSTAT) UNSPECIFIED [Suspect]
     Indication: ACUTE MYELOID LEUKAEMIA
     Dosage: 400 MG, ORAL, 400 MG, ORAL,
     Route: 048
     Dates: start: 20080614, end: 20080623
  4. VORINOSTAT (VORINOSTAT) UNSPECIFIED [Suspect]
     Indication: ACUTE MYELOID LEUKAEMIA
     Dosage: 400 MG, ORAL, 400 MG, ORAL,
     Route: 048
     Dates: start: 20080604, end: 20080706
  5. VITAMIN (VITAMINS NOS) [Concomitant]
  6. ACETAMINOPHEN [Concomitant]
  7. ACYCLOVIR [Concomitant]
  8. AMLODIPINE BESYLATE [Concomitant]
  9. ENOXAPARIN SODIUM [Concomitant]
  10. PANTOPRAZOLE SODIUM [Concomitant]

REACTIONS (10)
  - ASTHENIA [None]
  - BRONCHOPULMONARY ASPERGILLOSIS [None]
  - CLOSTRIDIAL INFECTION [None]
  - ESCHERICHIA BACTERAEMIA [None]
  - FEBRILE NEUTROPENIA [None]
  - HYPERHIDROSIS [None]
  - OROPHARYNGEAL PAIN [None]
  - PLEURITIC PAIN [None]
  - RETCHING [None]
  - THROMBOCYTOPENIA [None]
